FAERS Safety Report 17043557 (Version 1)
Quarter: 2019Q4

REPORT INFORMATION
  Report Type: Report from Study
  Country: US (occurrence: US)
  Receive Date: 20191118
  Receipt Date: 20191118
  Transmission Date: 20200122
  Serious: Yes (Death)
  Sender: FDA-Public Use
  Company Number: US-ACTELION-A-NJ2019-197953

PATIENT
  Age: 58 Year
  Sex: Female

DRUGS (9)
  1. TADALAFIL. [Concomitant]
     Active Substance: TADALAFIL
     Dosage: 40 MG, QD
     Dates: start: 20190809, end: 20191013
  2. POTASSIUM [Concomitant]
     Active Substance: POTASSIUM
  3. MYCOPHENOLATE [Concomitant]
     Active Substance: MYCOPHENOLIC ACID
  4. REMODULIN [Concomitant]
     Active Substance: TREPROSTINIL
  5. OPSUMIT [Suspect]
     Active Substance: MACITENTAN
     Indication: PULMONARY ARTERIAL HYPERTENSION
     Dosage: 10 MG, QD
     Route: 048
     Dates: start: 20190817, end: 20191013
  6. PREDNISONE. [Concomitant]
     Active Substance: PREDNISONE
  7. XARELTO [Concomitant]
     Active Substance: RIVAROXABAN
  8. GABAPENTIN. [Concomitant]
     Active Substance: GABAPENTIN
  9. FUROSEMIDE. [Concomitant]
     Active Substance: FUROSEMIDE

REACTIONS (1)
  - Death [Fatal]

NARRATIVE: CASE EVENT DATE: 20191013
